FAERS Safety Report 5232819-1 (Version None)
Quarter: 2007Q1

REPORT INFORMATION
  Report Type: 
  Country: None (occurrence: None)
  Receive Date: 20070206
  Receipt Date: 20070206
  Transmission Date: 20070707
  Serious: Yes (Hospitalization)
  Sender: FDA-Public Use
  Company Number: None

PATIENT
  Age: 51 Year
  Sex: Male
  Weight: 86.1834 kg

DRUGS (1)
  1. CIPROFLOXICIN 500 MG GENERIC BAYER [Suspect]
     Indication: URINARY TRACT INFECTION
     Dosage: 500  MG 2  X DAY  PO
     Route: 048
     Dates: start: 20060714, end: 20060723

REACTIONS (6)
  - ANXIETY [None]
  - CONDITION AGGRAVATED [None]
  - INSOMNIA [None]
  - MYALGIA [None]
  - NEUROPATHY PERIPHERAL [None]
  - TENDON PAIN [None]
